FAERS Safety Report 4451228-6 (Version None)
Quarter: 2004Q3

REPORT INFORMATION
  Report Type: 
  Country: None (occurrence: None)
  Receive Date: 20040915
  Receipt Date: 20040915
  Transmission Date: 20050211
  Serious: Yes (Other)
  Sender: FDA-Public Use
  Company Number: None

PATIENT
  Age: 49 Year
  Sex: Male
  Weight: 77.1115 kg

DRUGS (2)
  1. HYOSCYAMINE SULF 0.125 MG SC [Suspect]
     Indication: ABDOMINAL PAIN
     Dosage: BID PRN
     Dates: start: 20031201, end: 20040205
  2. HYOSCYAMINE SULF 0.125 MG SC [Suspect]
     Indication: PAIN
     Dosage: BID PRN
     Dates: start: 20031201, end: 20040205

REACTIONS (3)
  - CONFUSIONAL STATE [None]
  - PALPITATIONS [None]
  - PSYCHOTIC DISORDER [None]
